FAERS Safety Report 4667685-6 (Version None)
Quarter: 2005Q2

REPORT INFORMATION
  Report Type: 
  Country: None (occurrence: None)
  Receive Date: 20050520
  Receipt Date: 20050511
  Transmission Date: 20051028
  Serious: Yes (Hospitalization)
  Sender: FDA-Public Use
  Company Number: RU-JNJFOC-20050502741

PATIENT
  Sex: Male
  Weight: 82 kg

DRUGS (4)
  1. INFLIXIMAB [Suspect]
     Route: 042
  2. INFLIXIMAB [Suspect]
     Route: 042
  3. INFLIXIMAB [Suspect]
     Indication: ANKYLOSING SPONDYLITIS
     Route: 042
  4. NIMESULIDE [Concomitant]
     Route: 049

REACTIONS (3)
  - DERMATITIS BULLOUS [None]
  - HYPERKERATOSIS [None]
  - SEBORRHOEA [None]
